FAERS Safety Report 6144450-4 (Version None)
Quarter: 2009Q2

REPORT INFORMATION
  Report Type: 
  Country: None (occurrence: None)
  Receive Date: 20090406
  Receipt Date: 20090324
  Transmission Date: 20091009
  Serious: Yes (Life-Threatening, Hospitalization)
  Sender: FDA-Public Use
  Company Number: GB-ROCHE-573233

PATIENT
  Age: 43 Year
  Sex: Female

DRUGS (3)
  1. MYCOPHENOLATE MOFETIL [Suspect]
     Indication: UVEITIS
     Route: 065
     Dates: end: 20060101
  2. PREDNISOLONE [Suspect]
     Indication: UVEITIS
     Route: 065
  3. TACROLIMUS [Suspect]
     Indication: UVEITIS
     Route: 065
     Dates: end: 20060101

REACTIONS (17)
  - CARDIOGENIC SHOCK [None]
  - CELLULITIS [None]
  - HYPERTENSION [None]
  - LEFT VENTRICULAR DYSFUNCTION [None]
  - LOWER LIMB FRACTURE [None]
  - LOWER RESPIRATORY TRACT INFECTION [None]
  - MITRAL VALVE INCOMPETENCE [None]
  - MYCOBACTERIAL INFECTION [None]
  - MYCOBACTERIUM CHELONEI INFECTION [None]
  - NAUSEA [None]
  - OSTEOPOROSIS [None]
  - OSTEOPOROTIC FRACTURE [None]
  - PAIN IN EXTREMITY [None]
  - PNEUMONIA [None]
  - SPINAL COMPRESSION FRACTURE [None]
  - URINARY TRACT INFECTION [None]
  - WEIGHT DECREASED [None]
